FAERS Safety Report 19770403 (Version 2)
Quarter: 2021Q3

REPORT INFORMATION
  Report Type: Spontaneous
  Country: CN (occurrence: CN)
  Receive Date: 20210831
  Receipt Date: 20210831
  Transmission Date: 20211014
  Serious: Yes (Hospitalization)
  Sender: FDA-Public Use
  Company Number: CN-ELI_LILLY_AND_COMPANY-CN202108008923

PATIENT
  Age: 61 Year
  Sex: Female
  Weight: 65 kg

DRUGS (1)
  1. FORSTEO 250UG/ML [Suspect]
     Active Substance: TERIPARATIDE
     Indication: CALCIUM DEFICIENCY
     Dosage: 20 UG, DAILY
     Route: 058
     Dates: start: 20210811

REACTIONS (7)
  - Coma [Recovered/Resolved]
  - Vomiting [Unknown]
  - Cold sweat [Unknown]
  - Off label use [Unknown]
  - Cyanosis [Unknown]
  - Chills [Unknown]
  - Muscle spasms [Unknown]

NARRATIVE: CASE EVENT DATE: 202108
